FAERS Safety Report 11410097 (Version 1)
Quarter: 2015Q3

REPORT INFORMATION
  Report Type: Spontaneous
  Country: JP (occurrence: JP)
  Receive Date: 20150824
  Receipt Date: 20150824
  Transmission Date: 20151125
  Serious: Yes (Death, Other)
  Sender: FDA-Public Use
  Company Number: JP-AMGEN-JPNSP2015086175

PATIENT
  Age: 83 Year
  Sex: Female

DRUGS (1)
  1. PRALIA [Suspect]
     Active Substance: DENOSUMAB
     Indication: OSTEOPOROSIS
     Dosage: 60 MG, UNK
     Route: 065
     Dates: start: 201503

REACTIONS (3)
  - Respiratory disorder [Not Recovered/Not Resolved]
  - Dementia [Not Recovered/Not Resolved]
  - Gallbladder cancer [Fatal]

NARRATIVE: CASE EVENT DATE: 201503
